FAERS Safety Report 19932629 (Version 1)
Quarter: 2021Q4

REPORT INFORMATION
  Report Type: Spontaneous
  Country: US (occurrence: US)
  Receive Date: 20211007
  Receipt Date: 20211007
  Transmission Date: 20220304
  Serious: Yes (Other)
  Sender: FDA-Public Use
  Company Number: None

PATIENT
  Age: 24 Year
  Sex: Female

DRUGS (1)
  1. RISPERIDONE [Suspect]
     Active Substance: RISPERIDONE
     Indication: Bipolar I disorder
     Route: 048

REACTIONS (4)
  - Product substitution issue [None]
  - Product quality issue [None]
  - Condition aggravated [None]
  - Bipolar disorder [None]

NARRATIVE: CASE EVENT DATE: 20210806
